FAERS Safety Report 17194396 (Version 4)
Quarter: 2023Q1

REPORT INFORMATION
  Report Type: Report from Study
  Country: FR (occurrence: FR)
  Receive Date: 20191224
  Receipt Date: 20230324
  Transmission Date: 20230418
  Serious: Yes (Other)
  Sender: FDA-Public Use
  Company Number: FR-ABBVIE-18K-056-2567962-00

PATIENT
  Age: 87 Year
  Sex: Female
  Weight: 52 kg

DRUGS (18)
  1. VENETOCLAX [Suspect]
     Active Substance: VENETOCLAX
     Indication: Chronic lymphocytic leukaemia
     Route: 048
     Dates: start: 20180622, end: 20180702
  2. VENETOCLAX [Suspect]
     Active Substance: VENETOCLAX
     Indication: Chronic lymphocytic leukaemia
     Route: 048
     Dates: start: 20180703, end: 20180709
  3. VENETOCLAX [Suspect]
     Active Substance: VENETOCLAX
     Indication: Chronic lymphocytic leukaemia
     Route: 048
     Dates: start: 20180710, end: 20180716
  4. VENETOCLAX [Suspect]
     Active Substance: VENETOCLAX
     Indication: Chronic lymphocytic leukaemia
     Route: 048
     Dates: start: 20180717, end: 20180723
  5. VENETOCLAX [Suspect]
     Active Substance: VENETOCLAX
     Indication: Chronic lymphocytic leukaemia
     Route: 048
     Dates: start: 20180724, end: 20200609
  6. VENETOCLAX [Suspect]
     Active Substance: VENETOCLAX
     Indication: Chronic lymphocytic leukaemia
     Route: 048
     Dates: start: 20200610
  7. RASBURICASE [Concomitant]
     Active Substance: RASBURICASE
     Indication: Prophylaxis
     Dates: start: 20180622, end: 20180623
  8. VALSARTAN [Concomitant]
     Active Substance: VALSARTAN
     Indication: Hypertension
     Dates: start: 2008
  9. GEMFIBROZIL [Concomitant]
     Active Substance: GEMFIBROZIL
     Indication: Hypercholesterolaemia
     Dates: start: 2008
  10. KARDEGIC [Concomitant]
     Active Substance: ASPIRIN DL-LYSINE
     Indication: Thrombosis prophylaxis
     Dates: start: 2010
  11. BIMATOPROST [Concomitant]
     Active Substance: BIMATOPROST
     Indication: Glaucoma
     Dates: start: 2012
  12. CLOXACILLIN SODIUM [Concomitant]
     Active Substance: CLOXACILLIN SODIUM
     Indication: Device related infection
     Dates: start: 20190913, end: 20190920
  13. CEFIXIME [Concomitant]
     Active Substance: CEFIXIME
     Indication: Cystitis
     Dates: start: 20180819, end: 20180826
  14. ACETAMINOPHEN [Concomitant]
     Active Substance: ACETAMINOPHEN
     Indication: Device related infection
     Dates: start: 20190913, end: 20190920
  15. CIPROFLOXACIN [Concomitant]
     Active Substance: CIPROFLOXACIN
     Indication: Device related infection
     Dates: start: 20190916, end: 20190930
  16. LEVOFLOXACIN [Concomitant]
     Active Substance: LEVOFLOXACIN
     Indication: Pneumonia
     Dates: start: 20191115, end: 20191123
  17. LEVOTHYROXINE [Concomitant]
     Active Substance: LEVOTHYROXINE
     Indication: Hypothyroidism
     Dates: start: 20180701
  18. ALLOPURINOL [Concomitant]
     Active Substance: ALLOPURINOL
     Indication: Hyperuricaemia
     Dates: start: 20180705, end: 20180816

REACTIONS (9)
  - Device related infection [Recovered/Resolved]
  - Pneumonia [Recovered/Resolved]
  - Cystitis [Recovered/Resolved]
  - Cystitis [Recovered/Resolved]
  - Hyperkalaemia [Recovered/Resolved]
  - Hyperuricaemia [Not Recovered/Not Resolved]
  - Neutropenia [Recovered/Resolved]
  - Hypercalcaemia [Recovered/Resolved]
  - Hyperphosphataemia [Recovered/Resolved]

NARRATIVE: CASE EVENT DATE: 20180623
